FAERS Safety Report 7153180-1 (Version None)
Quarter: 2010Q4

REPORT INFORMATION
  Report Type: 
  Country: None (occurrence: None)
  Receive Date: 20101213
  Receipt Date: 20101130
  Transmission Date: 20110411
  Serious: Yes (Other)
  Sender: FDA-Public Use
  Company Number: US-ELI_LILLY_AND_COMPANY-US201012001482

PATIENT
  Sex: Male

DRUGS (6)
  1. CIALIS [Suspect]
     Dates: end: 20100825
  2. LOVASTATIN [Concomitant]
     Dates: end: 20100825
  3. FENOFIBRATE [Concomitant]
     Dates: start: 20100825
  4. PROTONIX [Concomitant]
     Dosage: UNK, UNK
     Dates: end: 20101211
  5. FLUTICASONE PROPIONATE [Concomitant]
     Dates: end: 20100825
  6. ANTIHYPERTENSIVES [Concomitant]
     Indication: HYPERTENSION

REACTIONS (3)
  - CATARACT NUCLEAR [None]
  - PAPILLOEDEMA [None]
  - TINNITUS [None]
